FAERS Safety Report 12332106 (Version 3)
Quarter: 2017Q3

REPORT INFORMATION
  Report Type: Spontaneous
  Country: US (occurrence: US)
  Receive Date: 20160504
  Receipt Date: 20170712
  Transmission Date: 20171127
  Serious: Yes (Other)
  Sender: FDA-Public Use
  Company Number: US-ROCHE-1642368

PATIENT
  Sex: Female
  Weight: 56.3 kg

DRUGS (13)
  1. ESBRIET [Suspect]
     Active Substance: PIRFENIDONE
     Indication: RESPIRATORY DISORDER
     Dosage: 2 CAPSULES 3 TIMES A DAY
     Route: 048
     Dates: start: 20151118
  2. PREDNISONE. [Concomitant]
     Active Substance: PREDNISONE
  3. SYMBICORT [Concomitant]
     Active Substance: BUDESONIDE\FORMOTEROL FUMARATE DIHYDRATE
  4. ESBRIET [Suspect]
     Active Substance: PIRFENIDONE
     Indication: IDIOPATHIC PULMONARY FIBROSIS
     Dosage: 3 CAPSULES 3 TIMES DAILY
     Route: 048
     Dates: start: 20150912, end: 20151117
  5. LORATADINE. [Concomitant]
     Active Substance: LORATADINE
  6. TYLENOL PM [Concomitant]
     Active Substance: ACETAMINOPHEN\DIPHENHYDRAMINE
  7. NEXIUM [Concomitant]
     Active Substance: ESOMEPRAZOLE MAGNESIUM
     Dosage: DRUG: NEXIUM DR
     Route: 065
  8. LUMIGAN [Concomitant]
     Active Substance: BIMATOPROST
  9. LUTEIN [Concomitant]
     Active Substance: LUTEIN
  10. TRAMADOL. [Concomitant]
     Active Substance: TRAMADOL
  11. ALBUTEROL. [Concomitant]
     Active Substance: ALBUTEROL
  12. MELOXICAM. [Concomitant]
     Active Substance: MELOXICAM
  13. OXYGEN. [Concomitant]
     Active Substance: OXYGEN

REACTIONS (7)
  - Decreased appetite [Recovering/Resolving]
  - Weight decreased [Recovering/Resolving]
  - White blood cell count decreased [Unknown]
  - Dysgeusia [Recovering/Resolving]
  - Dyspnoea [Unknown]
  - Weight increased [Unknown]
  - Infection [Unknown]
